FAERS Safety Report 6550846-9 (Version None)
Quarter: 2010Q1

REPORT INFORMATION
  Report Type: 
  Country: None (occurrence: None)
  Receive Date: 20100122
  Receipt Date: 20100122
  Transmission Date: 20100710
  Serious: Yes (Other)
  Sender: FDA-Public Use
  Company Number: None

PATIENT
  Age: 33 Year
  Sex: Female
  Weight: 58.0604 kg

DRUGS (1)
  1. ADDERALL XR 15 [Suspect]
     Indication: ATTENTION DEFICIT/HYPERACTIVITY DISORDER
     Dosage: ONCE DAILY PO
     Route: 048
     Dates: start: 20090430, end: 20100120

REACTIONS (5)
  - BLOOD PRESSURE INCREASED [None]
  - DRUG DISPENSING ERROR [None]
  - DRUG EFFECT DECREASED [None]
  - MOOD SWINGS [None]
  - PRODUCT SUBSTITUTION ISSUE [None]
